FAERS Safety Report 14489885 (Version 1)
Quarter: 2018Q1

REPORT INFORMATION
  Report Type: Report from Study
  Country: TW (occurrence: TW)
  Receive Date: 20180206
  Receipt Date: 20180206
  Transmission Date: 20180509
  Serious: Yes (Death, Other)
  Sender: FDA-Public Use
  Company Number: TW-SUN PHARMACEUTICAL INDUSTRIES LTD-2018RR-161965

PATIENT
  Age: 86 Year
  Sex: Male

DRUGS (1)
  1. ESOMEPRAZOL [Suspect]
     Active Substance: ESOMEPRAZOLE
     Indication: DUODENAL ULCER
     Route: 065

REACTIONS (1)
  - Toxic epidermal necrolysis [Fatal]
